FAERS Safety Report 8806819 (Version 1)
Quarter: 2012Q4

REPORT INFORMATION
  Report Type: 
  Country: BE (occurrence: BE)
  Receive Date: 20120925
  Receipt Date: 20120925
  Transmission Date: 20130627
  Serious: Yes (Other)
  Sender: FDA-Public Use
  Company Number: BE-ELI_LILLY_AND_COMPANY-BE201209005837

PATIENT
  Sex: Male

DRUGS (1)
  1. EFIENT [Suspect]
     Dosage: 10 mg,daily

REACTIONS (1)
  - Hepatitis [Unknown]
